FAERS Safety Report 8442886-X (Version None)
Quarter: 2012Q2

REPORT INFORMATION
  Report Type: 
  Country: None (occurrence: None)
  Receive Date: 20120323
  Receipt Date: 20110801
  Transmission Date: 20120825
  Serious: Yes (Other)
  Sender: FDA-Public Use
  Company Number: 163-21880-11061502

PATIENT
  Age: 56 Year
  Sex: Female

DRUGS (24)
  1. ALBUTEROL SULFATE [Concomitant]
  2. FLEXERIL [Concomitant]
  3. SINGULAIR [Concomitant]
  4. NORVASC [Concomitant]
  5. DARBEPOETIN ALFA (DARBEPOTEIN ALFA) [Concomitant]
  6. HECTOROL [Concomitant]
  7. ERGOCALCIFEROL [Concomitant]
  8. PREDNISONE TAB [Concomitant]
  9. SODIUM BICARBONATE IN PLASTIC CONTAINER [Concomitant]
  10. OXYCODONE HCL [Concomitant]
  11. CALCIUM GLUCONATE [Concomitant]
  12. POTASSIUM CHLORIDE [Concomitant]
  13. ASPIRIN [Concomitant]
  14. MAGNESIUM OXIDE (MANGESIUM OXIDE) [Concomitant]
  15. CAPEX (OTHER NON-THERAPEUTIC AUXILIARY PRODUCTS) [Concomitant]
  16. ACYCLOVIR [Concomitant]
  17. CALCIUM PLUS VITAMIN D (CALCIUM D3 ^STADA') [Concomitant]
  18. COLCRYS [Concomitant]
  19. REVLIMID [Suspect]
     Indication: MULTIPLE MYELOMA
     Dosage: 10 MG, QOD X 21 DAYS, PO
     Route: 048
     Dates: start: 20101213
  20. NEXIUM [Concomitant]
  21. MAGNESIUM SULFATE [Concomitant]
  22. RENVELA [Concomitant]
  23. MULTIVITAMIN [Concomitant]
  24. CITRACEAL (CALCIUM CITRATE) [Concomitant]

REACTIONS (1)
  - PLATELET COUNT DECREASED [None]
